FAERS Safety Report 16270832 (Version 1)
Quarter: 2019Q2

REPORT INFORMATION
  Report Type: Spontaneous
  Country: GR (occurrence: GR)
  Receive Date: 20190503
  Receipt Date: 20190503
  Transmission Date: 20190711
  Serious: Yes (Other)
  Sender: FDA-Public Use
  Company Number: GR-AMGEN-GRCSP2019067067

PATIENT

DRUGS (1)
  1. PROLIA [Suspect]
     Active Substance: DENOSUMAB
     Indication: PRODUCT USED FOR UNKNOWN INDICATION
     Dosage: UNK
     Route: 065

REACTIONS (6)
  - Atypical femur fracture [Unknown]
  - Pain in extremity [Unknown]
  - Osteonecrosis of jaw [Unknown]
  - Sarcoma [Unknown]
  - Hypercalcaemia [Unknown]
  - Hypophosphataemia [Unknown]
